FAERS Safety Report 8528405-8 (Version None)
Quarter: 2012Q3

REPORT INFORMATION
  Report Type: 
  Country: None (occurrence: None)
  Receive Date: 20120722
  Receipt Date: 20120716
  Transmission Date: 20120928
  Serious: Yes (Hospitalization, Other)
  Sender: FDA-Public Use
  Company Number: PHHY2012ES061020

PATIENT
  Age: 19 Year
  Sex: Female

DRUGS (8)
  1. ISONIAZID [Concomitant]
  2. ETHAMBUTOL HYDROCHLORIDE [Concomitant]
  3. PREDNISONE [Concomitant]
  4. RIFAMPICIN [Suspect]
     Indication: TUBERCULOSIS
  5. HYDROXYCHLOROQUINE SULFATE [Interacting]
     Indication: AUTOIMMUNE DISORDER
  6. METHOTREXATE [Concomitant]
  7. PYRAZINAMIDE [Concomitant]
  8. FOLIC ACID [Concomitant]

REACTIONS (16)
  - ARTHRALGIA [None]
  - ANAEMIA [None]
  - NODULE [None]
  - RENAL FAILURE ACUTE [None]
  - CONDITION AGGRAVATED [None]
  - LYMPHADENOPATHY [None]
  - KLEBSIELLA INFECTION [None]
  - DRUG INTERACTION [None]
  - PLEURAL EFFUSION [None]
  - PRURITUS GENERALISED [None]
  - AUTOIMMUNE DISORDER [None]
  - OEDEMA PERIPHERAL [None]
  - TOXIC SKIN ERUPTION [None]
  - LEUKOPENIA [None]
  - PRURITUS [None]
  - SKIN LESION [None]
